FAERS Safety Report 24840143 (Version 1)
Quarter: 2025Q1

REPORT INFORMATION
  Report Type: Spontaneous
  Country: US (occurrence: None)
  Receive Date: 20250114
  Receipt Date: 20250114
  Transmission Date: 20250408
  Serious: Yes (Hospitalization)
  Sender: FDA-CTU
  Company Number: None

PATIENT
  Age: 45 Year
  Sex: Female
  Weight: 54.7 kg

DRUGS (2)
  1. XELODA [Suspect]
     Active Substance: CAPECITABINE
     Dates: end: 20241217
  2. ELOXATIN [Suspect]
     Active Substance: OXALIPLATIN
     Dates: end: 20241203

REACTIONS (9)
  - Gastrointestinal stoma output increased [None]
  - Fatigue [None]
  - Dizziness [None]
  - Dehydration [None]
  - Acute kidney injury [None]
  - Therapy interrupted [None]
  - Blood pressure decreased [None]
  - Enteritis [None]
  - Therapy cessation [None]

NARRATIVE: CASE EVENT DATE: 20241227
